FAERS Safety Report 12786719 (Version 1)
Quarter: 2016Q3

REPORT INFORMATION
  Report Type: Report from Study
  Country: IT (occurrence: JP)
  Receive Date: 20160928
  Receipt Date: 20160928
  Transmission Date: 20161109
  Serious: Yes (Death)
  Sender: FDA-Public Use
  Company Number: IT-SIGMA-TAU US-2016STPI000614

PATIENT
  Age: 76 Year
  Sex: Male

DRUGS (12)
  1. CARNITOR [Suspect]
     Active Substance: LEVOCARNITINE
     Indication: CARNITINE DEFICIENCY
     Dosage: 1000 MG, TID
     Route: 048
     Dates: start: 20150111, end: 20150407
  2. LACTITOL [Concomitant]
     Active Substance: LACTITOL
  3. LANSOPRAZOLE. [Concomitant]
     Active Substance: LANSOPRAZOLE
  4. PROMAC                             /00024401/ [Concomitant]
     Active Substance: NITROFURANTOIN
  5. TRAMAL [Concomitant]
     Active Substance: TRAMADOL
  6. SAMSCA [Concomitant]
     Active Substance: TOLVAPTAN
  7. DEPAS [Concomitant]
     Active Substance: ETIZOLAM
  8. AMINOLEBAN EN [Concomitant]
     Active Substance: UNSPECIFIED INGREDIENT
  9. ROZEREM [Concomitant]
     Active Substance: RAMELTEON
  10. FUROSEMIDE. [Concomitant]
     Active Substance: FUROSEMIDE
  11. ALDACTONE A [Concomitant]
     Active Substance: SPIRONOLACTONE
  12. MAGMITT [Concomitant]
     Active Substance: MAGNESIUM OXIDE

REACTIONS (1)
  - Hepatic failure [Fatal]

NARRATIVE: CASE EVENT DATE: 20150406
